FAERS Safety Report 18293393 (Version 1)
Quarter: 2020Q3

REPORT INFORMATION
  Report Type: Spontaneous
  Country: US (occurrence: US)
  Receive Date: 20200921
  Receipt Date: 20200921
  Transmission Date: 20201103
  Serious: Yes (Hospitalization)
  Sender: FDA-Public Use
  Company Number: None

PATIENT
  Age: 22 Year
  Sex: Female

DRUGS (12)
  1. ONDANSETRON [Concomitant]
     Active Substance: ONDANSETRON
  2. MYCOPHENOLAT [Concomitant]
     Active Substance: MYCOPHENOLATE MOFETIL
  3. URSODIOL. [Concomitant]
     Active Substance: URSODIOL
  4. TACROLIMUS. [Concomitant]
     Active Substance: TACROLIMUS
  5. PROCHLORPER [Concomitant]
  6. PANTOPRAZOLE [Concomitant]
     Active Substance: PANTOPRAZOLE
  7. PREVYMIS [Suspect]
     Active Substance: LETERMOVIR
     Indication: ACUTE MYELOID LEUKAEMIA
     Route: 048
     Dates: start: 20200824
  8. MEDROXYPR [Concomitant]
  9. ACYCLOVIR. [Concomitant]
     Active Substance: ACYCLOVIR
  10. POSACONAZOLE [Concomitant]
     Active Substance: POSACONAZOLE
  11. ATOVAQUONE. [Concomitant]
     Active Substance: ATOVAQUONE
  12. LEVOFLOXACIN. [Concomitant]
     Active Substance: LEVOFLOXACIN

REACTIONS (2)
  - Therapy interrupted [None]
  - Hospitalisation [None]

NARRATIVE: CASE EVENT DATE: 20200901
